FAERS Safety Report 6269463-3 (Version None)
Quarter: 2009Q3

REPORT INFORMATION
  Report Type: 
  Country: None (occurrence: None)
  Receive Date: 20090715
  Receipt Date: 20090706
  Transmission Date: 20100115
  Serious: Yes (Hospitalization)
  Sender: FDA-Public Use
  Company Number: BR-BAXTER-2009BH011227

PATIENT
  Age: 58 Year
  Sex: Male
  Weight: 74 kg

DRUGS (3)
  1. SODIUM CHLORIDE 0.9% IN PLASTIC CONTAINER [Suspect]
     Indication: DRUG USE FOR UNKNOWN INDICATION
     Route: 042
     Dates: end: 20090701
  2. TRAMADOL HCL [Suspect]
     Indication: PAIN
     Route: 042
     Dates: start: 20090701, end: 20090701
  3. CHEMOTHERAPY (NOT SPECIFIED) [Concomitant]
     Indication: DRUG USE FOR UNKNOWN INDICATION
     Route: 065

REACTIONS (3)
  - CHILLS [None]
  - PYREXIA [None]
  - TREMOR [None]
